FAERS Safety Report 20619967 (Version 2)
Quarter: 2022Q2

REPORT INFORMATION
  Report Type: Spontaneous
  Country: CN (occurrence: None)
  Receive Date: 20220322
  Receipt Date: 20220401
  Transmission Date: 20220721
  Serious: Yes (Other)
  Sender: FDA-Public Use
  Company Number: CN-ROCHE-3047995

PATIENT
  Age: 80 Year
  Sex: Male
  Weight: 64 kg

DRUGS (34)
  1. CAPECITABINE [Suspect]
     Active Substance: CAPECITABINE
     Indication: Adenocarcinoma of colon
     Dosage: CAPECITABINE ALONE, XELOX FOR 6 CYCLES
     Route: 048
     Dates: start: 201911
  2. CAPECITABINE [Suspect]
     Active Substance: CAPECITABINE
     Indication: Colon cancer
  3. CAPECITABINE [Suspect]
     Active Substance: CAPECITABINE
     Indication: Colon cancer
  4. BEVACIZUMAB [Suspect]
     Active Substance: BEVACIZUMAB
     Indication: Adenocarcinoma of colon
     Dosage: BEVACIZUMAB + FOLFOX FOR 6 CYCLES
     Route: 065
     Dates: start: 2018
  5. BEVACIZUMAB [Suspect]
     Active Substance: BEVACIZUMAB
     Indication: Colon cancer
  6. BEVACIZUMAB [Suspect]
     Active Substance: BEVACIZUMAB
     Indication: Colon cancer
  7. OXALIPLATIN [Concomitant]
     Active Substance: OXALIPLATIN
     Indication: Adenocarcinoma of colon
     Dosage: CETUXIMAB + FLOFOX FOR 4 CYCLES
     Dates: start: 201512
  8. OXALIPLATIN [Concomitant]
     Active Substance: OXALIPLATIN
     Indication: Colon cancer
     Dosage: CETUXIMAB + FLOFOX FOR 12 CYCLES
     Dates: start: 201612, end: 201803
  9. OXALIPLATIN [Concomitant]
     Active Substance: OXALIPLATIN
     Indication: Colon cancer
     Dosage: BEVACIZUMAB + FOLFOX FOR 6 CYCLES
     Dates: start: 2018, end: 20180623
  10. CETUXIMAB [Concomitant]
     Active Substance: CETUXIMAB
     Indication: Adenocarcinoma of colon
     Dosage: CETUXIMAB + FLOFOX FOR 4 CYCLES
     Dates: start: 201512, end: 201803
  11. CETUXIMAB [Concomitant]
     Active Substance: CETUXIMAB
     Indication: Colon cancer
     Dosage: CETUXIMAB + FLOFOX FOR 12 CYCLES
     Dates: start: 201612, end: 201803
  12. CETUXIMAB [Concomitant]
     Active Substance: CETUXIMAB
     Indication: Colon cancer
     Dosage: CETUXIMAB + IRINOTECAN
     Dates: start: 20210105
  13. CETUXIMAB [Concomitant]
     Active Substance: CETUXIMAB
     Dosage: CETUXIMAB + RALTITREXED
  14. LEUCOVORIN CALCIUM [Concomitant]
     Active Substance: LEUCOVORIN CALCIUM
     Indication: Adenocarcinoma of colon
     Dosage: CETUXIMAB + FLOFOX FOR 4 CYCLES
     Dates: start: 201512
  15. LEUCOVORIN CALCIUM [Concomitant]
     Active Substance: LEUCOVORIN CALCIUM
     Indication: Colon cancer
     Dosage: CETUXIMAB + FLOFOX FOR 12 CYCLES
     Dates: start: 201612, end: 201803
  16. LEUCOVORIN CALCIUM [Concomitant]
     Active Substance: LEUCOVORIN CALCIUM
     Indication: Colon cancer
     Dosage: BEVACIZUMAB + FOLFOX FOR 6 CYCLES
     Dates: start: 201612, end: 20180623
  17. FLUOROURACIL [Concomitant]
     Active Substance: FLUOROURACIL
     Indication: Adenocarcinoma of colon
     Dosage: CETUXIMAB + FLOFOX FOR 4 CYCLES
     Dates: start: 201512
  18. FLUOROURACIL [Concomitant]
     Active Substance: FLUOROURACIL
     Indication: Colon cancer
     Dosage: CETUXIMAB + FLOFOX FOR 12 CYCLES
     Dates: start: 201612, end: 201803
  19. FLUOROURACIL [Concomitant]
     Active Substance: FLUOROURACIL
     Indication: Colon cancer
     Dosage: BEVACIZUMAB + FOLFOX FOR 6 CYCLES
     Dates: start: 201612, end: 20180623
  20. IRINOTECAN [Concomitant]
     Active Substance: IRINOTECAN
     Indication: Adenocarcinoma of colon
  21. IRINOTECAN [Concomitant]
     Active Substance: IRINOTECAN
     Indication: Colon cancer
  22. IRINOTECAN [Concomitant]
     Active Substance: IRINOTECAN
     Indication: Colon cancer
  23. FRUQUINTINIB [Concomitant]
     Active Substance: FRUQUINTINIB
     Indication: Adenocarcinoma of colon
     Dosage: DAY1-21
     Route: 048
     Dates: start: 202003
  24. FRUQUINTINIB [Concomitant]
     Active Substance: FRUQUINTINIB
     Indication: Colon cancer
  25. FRUQUINTINIB [Concomitant]
     Active Substance: FRUQUINTINIB
     Indication: Colon cancer
  26. RALTITREXED [Concomitant]
     Active Substance: RALTITREXED
     Indication: Adenocarcinoma of colon
     Dosage: CETUXIMAB + RALTITREXED
     Route: 048
  27. RALTITREXED [Concomitant]
     Active Substance: RALTITREXED
     Indication: Colon cancer
  28. RALTITREXED [Concomitant]
     Active Substance: RALTITREXED
     Indication: Colon cancer
  29. REGORAFENIB [Concomitant]
     Active Substance: REGORAFENIB
     Indication: Colon cancer
     Dates: start: 20220107
  30. REGORAFENIB [Concomitant]
     Active Substance: REGORAFENIB
     Indication: Adenocarcinoma of colon
  31. REGORAFENIB [Concomitant]
     Active Substance: REGORAFENIB
     Indication: Colon cancer
  32. TISLELIZUMAB [Concomitant]
     Active Substance: TISLELIZUMAB
     Indication: Adenocarcinoma of colon
     Dates: start: 20220107
  33. TISLELIZUMAB [Concomitant]
     Active Substance: TISLELIZUMAB
     Indication: Colon cancer
  34. TISLELIZUMAB [Concomitant]
     Active Substance: TISLELIZUMAB
     Indication: Colon cancer

REACTIONS (4)
  - Neoplasm recurrence [Unknown]
  - Palmar-plantar erythrodysaesthesia syndrome [Unknown]
  - Rash [Unknown]
  - Diarrhoea [Unknown]

NARRATIVE: CASE EVENT DATE: 20200101
